FAERS Safety Report 14555269 (Version 1)
Quarter: 2018Q1

REPORT INFORMATION
  Report Type: Spontaneous
  Country: GB (occurrence: GB)
  Receive Date: 20180219
  Receipt Date: 20180219
  Transmission Date: 20180509
  Serious: Yes (Life-Threatening, Hospitalization)
  Sender: FDA-Public Use
  Company Number: None

PATIENT
  Age: 26 Year
  Sex: Male
  Weight: 85 kg

DRUGS (1)
  1. CYMBALTA [Suspect]
     Active Substance: DULOXETINE HYDROCHLORIDE

REACTIONS (9)
  - Disorientation [None]
  - Agitation [None]
  - Amnesia [None]
  - Emotional distress [None]
  - Dissociative disorder [None]
  - Drug effect decreased [None]
  - Confusional state [None]
  - Alcohol use [None]
  - Circulatory collapse [None]

NARRATIVE: CASE EVENT DATE: 20161116
